FAERS Safety Report 5201777-8 (Version None)
Quarter: 2006Q4

REPORT INFORMATION
  Report Type: 
  Country: None (occurrence: None)
  Receive Date: 20061002
  Receipt Date: 20060320
  Transmission Date: 20070319
  Serious: Yes (Hospitalization)
  Sender: FDA-Public Use
  Company Number: TPA2006A00467

PATIENT
  Sex: Male

DRUGS (2)
  1. ACTOS [Suspect]
     Dosage: PER ORAL
     Route: 048
  2. AVANDIA [Suspect]

REACTIONS (1)
  - LIVER FUNCTION TEST ABNORMAL [None]
